FAERS Safety Report 7528181-1 (Version None)
Quarter: 2011Q2

REPORT INFORMATION
  Report Type: 
  Country: None (occurrence: None)
  Receive Date: 20110607
  Receipt Date: 20110117
  Transmission Date: 20111010
  Serious: No
  Sender: FDA-Public Use
  Company Number: US-ASTRAZENECA-2011SE02642

PATIENT

DRUGS (1)
  1. OMEPRAZOLE [Suspect]
     Route: 048

REACTIONS (1)
  - ACQUIRED OESOPHAGEAL WEB [None]
